FAERS Safety Report 20430442 (Version 1)
Quarter: 2022Q1

REPORT INFORMATION
  Report Type: Report from Study
  Country: FR (occurrence: FR)
  Receive Date: 20220204
  Receipt Date: 20220204
  Transmission Date: 20220424
  Serious: Yes (Hospitalization)
  Sender: FDA-Public Use
  Company Number: FR-SERVIER-S20008167

PATIENT

DRUGS (10)
  1. PEGASPARGASE [Suspect]
     Active Substance: PEGASPARGASE
     Indication: Acute lymphocytic leukaemia
     Dosage: 1625 IU
     Route: 042
     Dates: start: 20200713, end: 20200713
  2. VINCRISTINE SULFATE [Suspect]
     Active Substance: VINCRISTINE SULFATE
     Indication: Acute lymphocytic leukaemia
     Dosage: 1,0 MG D8
     Route: 042
     Dates: start: 20200708, end: 20200708
  3. VINCRISTINE SULFATE [Suspect]
     Active Substance: VINCRISTINE SULFATE
     Dosage: 0.9MG D15
     Route: 042
     Dates: start: 20200716, end: 20200716
  4. VINCRISTINE SULFATE [Suspect]
     Active Substance: VINCRISTINE SULFATE
     Dosage: 1.0MG D22
     Route: 042
     Dates: start: 20200722, end: 20200722
  5. VINCRISTINE SULFATE [Suspect]
     Active Substance: VINCRISTINE SULFATE
     Dosage: 1.1MG D29
     Route: 042
     Dates: start: 20200729, end: 20200729
  6. METHOTREXATE [Suspect]
     Active Substance: METHOTREXATE
     Indication: Acute lymphocytic leukaemia
     Dosage: 12 MG D1
     Route: 037
     Dates: start: 20200701, end: 20200701
  7. METHOTREXATE [Suspect]
     Active Substance: METHOTREXATE
     Dosage: 12 MG D15
     Route: 037
     Dates: start: 20200715, end: 20200715
  8. METHOTREXATE [Suspect]
     Active Substance: METHOTREXATE
     Dosage: 12MG D24
     Route: 037
     Dates: start: 20200724, end: 20200724
  9. TN UNSPECIFIED [Concomitant]
     Indication: Acute lymphocytic leukaemia
     Dosage: 40 MG D1-D7
     Route: 042
     Dates: start: 20200701, end: 20200707
  10. TN UNSPECIFIED [Concomitant]
     Indication: Acute lymphocytic leukaemia
     Dosage: 2MG D8-D28
     Route: 048
     Dates: start: 20200708, end: 20200728

REACTIONS (1)
  - Pyrexia [Recovered/Resolved]

NARRATIVE: CASE EVENT DATE: 20200807
